FAERS Safety Report 13854102 (Version 1)
Quarter: 2017Q3

REPORT INFORMATION
  Report Type: Spontaneous
  Country: CN (occurrence: CN)
  Receive Date: 20170810
  Receipt Date: 20170810
  Transmission Date: 20171127
  Serious: Yes (Other)
  Sender: FDA-Public Use
  Company Number: CN-NAPPMUNDI-GBR-2017-0047668

PATIENT
  Age: 68 Year
  Sex: Female
  Weight: 60 kg

DRUGS (3)
  1. PEMETREXED. [Concomitant]
     Active Substance: PEMETREXED
     Indication: CHEMOTHERAPY
  2. LOBAPLATIN [Concomitant]
     Active Substance: LOBAPLATIN
     Indication: CHEMOTHERAPY
  3. OXYCONTIN [Suspect]
     Active Substance: OXYCODONE HYDROCHLORIDE
     Indication: ANALGESIC THERAPY
     Dosage: 10 MG, BID
     Route: 048
     Dates: start: 20170426, end: 20170426

REACTIONS (7)
  - Hypoxia [Recovering/Resolving]
  - Blood sodium decreased [Recovering/Resolving]
  - Dizziness [Recovering/Resolving]
  - Blood potassium decreased [Recovering/Resolving]
  - Nausea [Recovering/Resolving]
  - Hypokinesia [Recovering/Resolving]
  - Vomiting [Recovering/Resolving]

NARRATIVE: CASE EVENT DATE: 20170426
